FAERS Safety Report 11201445 (Version 1)
Quarter: 2015Q2

REPORT INFORMATION
  Report Type: Spontaneous
  Country: JP (occurrence: JP)
  Receive Date: 20150619
  Receipt Date: 20150619
  Transmission Date: 20150821
  Serious: Yes (Other)
  Sender: FDA-Public Use
  Company Number: JP-009507513-1506JPN007352

PATIENT
  Sex: Male

DRUGS (7)
  1. BELSOMRA [Suspect]
     Active Substance: SUVOREXANT
     Dosage: DOSE: UNKNOWN, ^CUTTING OFF 1MG^ OF BELSOMRA, FREQUENCY: UNKNOWN
     Route: 048
  2. DEPAS [Concomitant]
     Active Substance: ETIZOLAM
     Dosage: UNK
     Route: 048
  3. BELSOMRA [Suspect]
     Active Substance: SUVOREXANT
     Dosage: UNK
     Route: 048
  4. PAXIL [Concomitant]
     Active Substance: PAROXETINE HYDROCHLORIDE
     Dosage: UNK
     Route: 048
  5. DOGMATYL [Concomitant]
     Active Substance: SULPIRIDE
     Dosage: UNK
     Route: 048
     Dates: start: 2005
  6. RHYTHMY [Concomitant]
     Active Substance: RILMAZAFONE HYDROCHLORIDE
     Dosage: UNK
     Route: 048
  7. DORAL [Concomitant]
     Active Substance: QUAZEPAM
     Dosage: UNK
     Route: 048

REACTIONS (5)
  - Hypoacusis [Unknown]
  - Insomnia [Unknown]
  - Astigmatism [Unknown]
  - Intentional product use issue [Unknown]
  - Nasal discomfort [Unknown]
